FAERS Safety Report 9896805 (Version 1)
Quarter: 2014Q1

REPORT INFORMATION
  Report Type: Spontaneous
  Country: US (occurrence: US)
  Receive Date: 20140213
  Receipt Date: 20140213
  Transmission Date: 20141002
  Serious: No
  Sender: FDA-Public Use
  Company Number: US-BRISTOL-MYERS SQUIBB COMPANY-19212307

PATIENT
  Age: 55 Year
  Sex: Female
  Weight: 77.1 kg

DRUGS (1)
  1. ORENCIA [Suspect]
     Indication: RHEUMATOID ARTHRITIS
     Dosage: INF
     Route: 042
     Dates: start: 201302, end: 201303

REACTIONS (1)
  - Hypersensitivity [Recovering/Resolving]
